FAERS Safety Report 7462122-0 (Version None)
Quarter: 2011Q2

REPORT INFORMATION
  Report Type: 
  Country: None (occurrence: None)
  Receive Date: 20110427
  Receipt Date: 20110415
  Transmission Date: 20111010
  Serious: Yes (Other)
  Sender: FDA-Public Use
  Company Number: CIP11000991

PATIENT
  Age: 80 Year
  Sex: Female

DRUGS (2)
  1. ACTONEL [Suspect]
     Dosage: 35 MG, ONCE A WEEK, ORAL
     Route: 048
     Dates: start: 20020101
  2. ANTIHYPERTENSIVES [Concomitant]

REACTIONS (5)
  - OESOPHAGEAL SPASM [None]
  - INCREASED UPPER AIRWAY SECRETION [None]
  - OESOPHAGEAL RUPTURE [None]
  - HAEMOPTYSIS [None]
  - OESOPHAGEAL DISORDER [None]
